FAERS Safety Report 8510848-X (Version None)
Quarter: 2012Q3

REPORT INFORMATION
  Report Type: 
  Country: None (occurrence: None)
  Receive Date: 20120716
  Receipt Date: 20120705
  Transmission Date: 20120928
  Serious: Yes (Other)
  Sender: FDA-Public Use
  Company Number: ES-ELI_LILLY_AND_COMPANY-ES201205009599

PATIENT
  Age: 83 Year
  Sex: Male

DRUGS (4)
  1. DUTASTERIDE/TAMSULOSIN HYDROCHLORIDE [Concomitant]
  2. ENALAPRIL MALEATE [Concomitant]
  3. CIALIS [Suspect]
     Dosage: 10 MG, UNKNOWN
  4. CIALIS [Suspect]
     Dosage: 5 MG, UNK

REACTIONS (3)
  - PROSTATE CANCER [None]
  - INTENTIONAL DRUG MISUSE [None]
  - DRUG INEFFECTIVE [None]
